FAERS Safety Report 12768880 (Version 1)
Quarter: 2016Q3

REPORT INFORMATION
  Report Type: Spontaneous
  Country: US (occurrence: US)
  Receive Date: 20160921
  Receipt Date: 20160921
  Transmission Date: 20161109
  Serious: No
  Sender: FDA-Public Use
  Company Number: US-JAZZ-2016-US-010479

PATIENT
  Age: 54 Year
  Sex: Female

DRUGS (23)
  1. LOSARTAN AND HYDROCHLOROTHIAZIDE [Concomitant]
     Active Substance: HYDROCHLOROTHIAZIDE\LOSARTAN POTASSIUM
  2. BRINTELLIX [Concomitant]
     Active Substance: VORTIOXETINE HYDROBROMIDE
  3. GARLIC. [Concomitant]
     Active Substance: GARLIC
  4. XYREM [Suspect]
     Active Substance: SODIUM OXYBATE
     Dosage: 6 G, BID
     Route: 048
     Dates: start: 201603
  5. MULTAQ [Concomitant]
     Active Substance: DRONEDARONE
  6. LEVOTHYROXIN [Concomitant]
     Active Substance: LEVOTHYROXINE
  7. PRILOSEC [Concomitant]
     Active Substance: OMEPRAZOLE MAGNESIUM
  8. CALCIUM + VITAMIN D [Concomitant]
     Active Substance: CALCIUM\VITAMIN D
  9. DESIPRAMINE [Concomitant]
     Active Substance: DESIPRAMINE
  10. PRAVASTATIN. [Concomitant]
     Active Substance: PRAVASTATIN
  11. CINNAMON. [Concomitant]
     Active Substance: CINNAMON
  12. OXAZEPAM. [Concomitant]
     Active Substance: OXAZEPAM
  13. TRIAZOLAM. [Concomitant]
     Active Substance: TRIAZOLAM
  14. COREG [Concomitant]
     Active Substance: CARVEDILOL
  15. TYLENOL [Concomitant]
     Active Substance: ACETAMINOPHEN
  16. CLARITIN [Concomitant]
     Active Substance: LORATADINE
  17. XYREM [Suspect]
     Active Substance: SODIUM OXYBATE
     Indication: NARCOLEPSY
     Dosage: 4.5 G, BID
     Route: 048
     Dates: start: 201008, end: 201012
  18. FLAXSEED [Concomitant]
     Active Substance: FLAX SEED
  19. STRATTERA [Concomitant]
     Active Substance: ATOMOXETINE HYDROCHLORIDE
  20. GABAPENTIN. [Concomitant]
     Active Substance: GABAPENTIN
  21. IBUPROFEN. [Concomitant]
     Active Substance: IBUPROFEN
  22. MULTIVITAMIN [Concomitant]
     Active Substance: VITAMINS
  23. XYREM [Suspect]
     Active Substance: SODIUM OXYBATE
     Indication: CATAPLEXY
     Dosage: DOSE ADJUSTMENTS
     Route: 048
     Dates: start: 201012, end: 201603

REACTIONS (2)
  - Pollakiuria [Not Recovered/Not Resolved]
  - Micturition urgency [Not Recovered/Not Resolved]

NARRATIVE: CASE EVENT DATE: 201604
